FAERS Safety Report 5708484-3 (Version None)
Quarter: 2008Q2

REPORT INFORMATION
  Report Type: 
  Country: None (occurrence: None)
  Receive Date: 20080414
  Receipt Date: 20080414
  Transmission Date: 20081010
  Serious: Yes (Life-Threatening, Hospitalization)
  Sender: FDA-Public Use
  Company Number: None

PATIENT
  Age: 64 Year
  Sex: Male

DRUGS (3)
  1. AZITHROMYCIN [Suspect]
     Indication: UPPER RESPIRATORY TRACT INFECTION
     Dosage: 250MG  EVERY DAY PO
     Route: 048
     Dates: start: 20080229, end: 20080304
  2. LISINOPRIL [Suspect]
     Indication: DIABETES MELLITUS
     Dosage: 20MG EVERY DAY PO
     Route: 048
     Dates: start: 20070126, end: 20080301
  3. LISINOPRIL [Suspect]
     Indication: HYPERTENSION
     Dosage: 20MG EVERY DAY PO
     Route: 048
     Dates: start: 20070126, end: 20080301

REACTIONS (1)
  - ANGIOEDEMA [None]
